FAERS Safety Report 4779144-0 (Version None)
Quarter: 2005Q3

REPORT INFORMATION
  Report Type: 
  Country: None (occurrence: None)
  Receive Date: 20050926
  Receipt Date: 20050922
  Transmission Date: 20060218
  Serious: Yes (Life-Threatening, Hospitalization)
  Sender: FDA-Public Use
  Company Number: ES-MERCK-0509ESP00033

PATIENT
  Age: 75 Year
  Sex: Male

DRUGS (4)
  1. ZOCOR [Suspect]
     Route: 048
     Dates: start: 20040401
  2. CLOPIDOGREL BISULFATE [Suspect]
     Route: 048
     Dates: start: 20040401
  3. BISOPROLOL FUMARATE [Suspect]
     Route: 048
     Dates: start: 20040401
  4. RAMIPRIL [Suspect]
     Route: 048
     Dates: start: 20040401

REACTIONS (1)
  - GASTROINTESTINAL HAEMORRHAGE [None]
